FAERS Safety Report 18361019 (Version 2)
Quarter: 2020Q4

REPORT INFORMATION
  Report Type: Spontaneous
  Country: FR (occurrence: FR)
  Receive Date: 20201008
  Receipt Date: 20201012
  Transmission Date: 20210114
  Serious: Yes (Other)
  Sender: FDA-Public Use
  Company Number: FR-UCBSA-2020038923

PATIENT
  Age: 26 Year
  Sex: Female

DRUGS (1)
  1. CIMZIA [Suspect]
     Active Substance: CERTOLIZUMAB PEGOL
     Indication: AXIAL SPONDYLOARTHRITIS
     Dosage: 200 MILLIGRAM, UNK
     Dates: start: 201908

REACTIONS (4)
  - Bilirubin conjugated increased [Recovered/Resolved]
  - Abdominal pain upper [Unknown]
  - Blood bilirubin increased [Recovered/Resolved]
  - Hydrosalpinx [Unknown]

NARRATIVE: CASE EVENT DATE: 201908
